FAERS Safety Report 8920856 (Version 2)
Quarter: 2013Q1

REPORT INFORMATION
  Report Type: Spontaneous
  Country: US (occurrence: US)
  Receive Date: 20121122
  Receipt Date: 20130116
  Transmission Date: 20140127
  Serious: No
  Sender: FDA-Public Use
  Company Number: US-PFIZER INC-2012291378

PATIENT
  Age: 44 Year
  Sex: Male
  Weight: 99.77 kg

DRUGS (5)
  1. PRISTIQ [Suspect]
     Indication: DEPRESSION
     Dosage: 50 MG, 1X/DAY
     Route: 048
     Dates: start: 20120710, end: 20121115
  2. PRISTIQ [Suspect]
     Indication: MALAISE
  3. PRISTIQ [Suspect]
     Indication: FATIGUE
  4. LIPITOR [Concomitant]
     Dosage: UNK
  5. PROTONIX [Concomitant]
     Indication: DYSPEPSIA
     Dosage: UNK

REACTIONS (5)
  - Withdrawal syndrome [Recovered/Resolved]
  - Fatigue [Recovered/Resolved]
  - Head discomfort [Recovered/Resolved]
  - Dizziness [Recovered/Resolved]
  - Dysstasia [Recovered/Resolved]
